FAERS Safety Report 10390046 (Version 1)
Quarter: 2014Q3

REPORT INFORMATION
  Report Type: Spontaneous
  Country: GB (occurrence: None)
  Receive Date: 20140813
  Receipt Date: 20140813
  Transmission Date: 20150326
  Serious: Yes (Hospitalization)
  Sender: FDA-Public Use
  Company Number: GB-DEXPHARM-20140524

PATIENT
  Age: 89 Year
  Sex: Female

DRUGS (6)
  1. ALENDRONATE [Concomitant]
     Active Substance: ALENDRONATE SODIUM
  2. OMEPRAZOLE. [Suspect]
     Active Substance: OMEPRAZOLE
     Indication: PEPTIC ULCER
     Dosage: 549 DAY 20 MG SEP DOSAGES/INTERVAL 1 IN 1 DAY ORAL
     Route: 048
     Dates: start: 20130113, end: 20140706
  3. PARACETAMOL [Concomitant]
     Active Substance: ACETAMINOPHEN
  4. PIROXICAM. [Concomitant]
     Active Substance: PIROXICAM
  5. ADCAL-D3 [Concomitant]
     Active Substance: CALCIUM CARBONATE\CHOLECALCIFEROL
  6. LAXIDO [Concomitant]
     Active Substance: POLYETHYLENE GLYCOL 3350\POTASSIUM CHLORIDE\SODIUM BICARBONATE\SODIUM CHLORIDE

REACTIONS (4)
  - Hyponatraemia [None]
  - Delirium [None]
  - Fall [None]
  - Confusional state [None]

NARRATIVE: CASE EVENT DATE: 20140607
